FAERS Safety Report 8476164-X (Version None)
Quarter: 2012Q2

REPORT INFORMATION
  Report Type: 
  Country: None (occurrence: None)
  Receive Date: 20120628
  Receipt Date: 20120622
  Transmission Date: 20120825
  Serious: Yes (Death, Other)
  Sender: FDA-Public Use
  Company Number: JP-ELI_LILLY_AND_COMPANY-JP201206006697

PATIENT
  Age: 83 Year
  Sex: Female

DRUGS (23)
  1. FORTEO [Suspect]
     Indication: OSTEOPOROSIS
     Dosage: 20 UG, QD
     Route: 058
     Dates: start: 20120525, end: 20120618
  2. POTASSIUM CHLORIDE [Concomitant]
     Dosage: UNK
     Route: 042
  3. PREDNISOLONE SODIUM SUCCINATE INJ [Concomitant]
     Route: 048
  4. VEEN D [Concomitant]
     Route: 042
  5. LASIX [Concomitant]
     Route: 048
  6. FAMOTIDINE [Concomitant]
     Route: 048
  7. CLARITHROMYCIN [Concomitant]
     Route: 048
  8. KREMEZIN [Concomitant]
     Route: 048
  9. ADOFEED [Concomitant]
     Route: 062
  10. CRAVIT [Concomitant]
     Route: 048
  11. LOXONIN [Concomitant]
     Route: 062
  12. MUCOSTA [Concomitant]
     Route: 048
  13. MERISLON [Concomitant]
     Route: 048
  14. SODIUM CHLORIDE [Concomitant]
     Route: 042
  15. CEROCRAL [Concomitant]
     Route: 048
  16. AMOBAN [Concomitant]
     Route: 048
  17. PURSENNID                          /00571902/ [Concomitant]
     Route: 048
  18. PHYSIOSOL 3 [Concomitant]
     Route: 042
  19. NEOAMIYU [Concomitant]
     Route: 042
  20. MAGMITT [Concomitant]
     Dosage: UNK
     Route: 048
  21. LOXOMARIN [Concomitant]
     Route: 048
  22. LASIX [Concomitant]
     Route: 042
  23. ADENOSINE [Concomitant]
     Dosage: UNK
     Route: 048

REACTIONS (9)
  - CEREBRAL HAEMORRHAGE [None]
  - DECREASED APPETITE [None]
  - THIRST [None]
  - PLATELET COUNT DECREASED [None]
  - TOOTHACHE [None]
  - BLOOD ALBUMIN DECREASED [None]
  - ABDOMINAL DISTENSION [None]
  - ANAEMIA [None]
  - C-REACTIVE PROTEIN INCREASED [None]
